FAERS Safety Report 15810342 (Version 6)
Quarter: 2019Q2

REPORT INFORMATION
  Report Type: Report from Study
  Country: CA (occurrence: CA)
  Receive Date: 20190111
  Receipt Date: 20190619
  Transmission Date: 20190711
  Serious: Yes (Other)
  Sender: FDA-Public Use
  Company Number: CA-ROCHE-1768995

PATIENT
  Age: 52 Year
  Sex: Female
  Weight: 66 kg

DRUGS (11)
  1. PREMARIN [Concomitant]
     Active Substance: ESTROGENS, CONJUGATED
  2. TECTA [Concomitant]
     Active Substance: PANTOPRAZOLE MAGNESIUM
  3. AXERT [Concomitant]
     Active Substance: ALMOTRIPTAN MALATE
  4. PERCOCET [Concomitant]
     Active Substance: ACETAMINOPHEN\OXYCODONE HYDROCHLORIDE
  5. FOLIC ACID. [Concomitant]
     Active Substance: FOLIC ACID
  6. ACTEMRA [Suspect]
     Active Substance: TOCILIZUMAB
     Indication: RHEUMATOID ARTHRITIS
     Route: 042
     Dates: start: 20160524
  7. HUMIRA [Concomitant]
     Active Substance: ADALIMUMAB
  8. IMURAN [Concomitant]
     Active Substance: AZATHIOPRINE
  9. DOMPERIDONE [Concomitant]
     Active Substance: DOMPERIDONE
  10. METHOTREXATE. [Concomitant]
     Active Substance: METHOTREXATE
  11. SENOKOT [Concomitant]
     Active Substance: SENNOSIDES

REACTIONS (40)
  - Tooth abscess [Recovered/Resolved]
  - Nausea [Unknown]
  - C-reactive protein increased [Unknown]
  - Laryngitis [Recovering/Resolving]
  - Ear pain [Not Recovered/Not Resolved]
  - Rhinorrhoea [Unknown]
  - Nasal discomfort [Unknown]
  - Cardiac ventricular disorder [Unknown]
  - Vomiting [Unknown]
  - Chest pain [Recovering/Resolving]
  - Weight increased [Unknown]
  - Asthenia [Recovering/Resolving]
  - Migraine [Unknown]
  - Gingivitis [Not Recovered/Not Resolved]
  - Ear infection [Not Recovered/Not Resolved]
  - Joint swelling [Unknown]
  - Fatigue [Not Recovered/Not Resolved]
  - Neck pain [Not Recovered/Not Resolved]
  - Insomnia [Not Recovered/Not Resolved]
  - Animal bite [Not Recovered/Not Resolved]
  - Wisdom teeth removal [Not Recovered/Not Resolved]
  - Urticaria [Recovered/Resolved]
  - Urticaria [Unknown]
  - Weight decreased [Unknown]
  - Oropharyngeal pain [Unknown]
  - Erythema [Not Recovered/Not Resolved]
  - Abdominal pain upper [Not Recovered/Not Resolved]
  - Blood pressure increased [Unknown]
  - Musculoskeletal pain [Not Recovered/Not Resolved]
  - Musculoskeletal stiffness [Not Recovered/Not Resolved]
  - Pain [Not Recovered/Not Resolved]
  - Feeling hot [Not Recovered/Not Resolved]
  - Heart rate increased [Recovered/Resolved]
  - Limb mass [Unknown]
  - Oral infection [Not Recovered/Not Resolved]
  - Arthralgia [Not Recovered/Not Resolved]
  - Swelling [Not Recovered/Not Resolved]
  - Ill-defined disorder [Not Recovered/Not Resolved]
  - Dizziness [Recovered/Resolved]
  - Nasopharyngitis [Not Recovered/Not Resolved]

NARRATIVE: CASE EVENT DATE: 201612
